FAERS Safety Report 9132813 (Version 2)
Quarter: 2013Q1

REPORT INFORMATION
  Report Type: Report from Study
  Country: CA (occurrence: CA)
  Receive Date: 20130301
  Receipt Date: 20130325
  Transmission Date: 20140127
  Serious: Yes (Hospitalization)
  Sender: FDA-Public Use
  Company Number: CA-ROCHE-1196815

PATIENT
  Age: 59 Year
  Sex: Male

DRUGS (3)
  1. PEGASYS [Suspect]
     Indication: HEPATITIS C
     Route: 058
     Dates: start: 20120928, end: 20130308
  2. RIBAVIRIN [Suspect]
     Indication: HEPATITIS C
     Route: 048
     Dates: start: 20120928, end: 20130316
  3. INCIVEK [Concomitant]
     Route: 065
     Dates: start: 20120928

REACTIONS (3)
  - Pain [Unknown]
  - Liver abscess [Unknown]
  - Body temperature increased [Unknown]
